FAERS Safety Report 5009110-1 (Version None)
Quarter: 2006Q2

REPORT INFORMATION
  Report Type: 
  Country: None (occurrence: None)
  Receive Date: 20060519
  Receipt Date: 20060502
  Transmission Date: 20061013
  Serious: Yes (Hospitalization, Disabling)
  Sender: FDA-Public Use
  Company Number: 221813

PATIENT
  Age: 63 Year
  Sex: Female
  Weight: 116.8 kg

DRUGS (3)
  1. BEVACIZUMAB OR PLACEBO (BEVACIZUMAB OR PLACEBO) PWDR + SOLVENT, INFUSI [Suspect]
     Indication: NON-SMALL CELL LUNG CANCER
     Dosage: 7.5 MG, Q3W, INTRAVENOUS
     Route: 042
     Dates: start: 20051208
  2. CISPLATIN [Suspect]
     Indication: NON-SMALL CELL LUNG CANCER
     Dosage: 80 MG/M2, Q2W, INTRAVENOUS
     Route: 042
     Dates: start: 20051208
  3. GEMCITABINE [Suspect]
     Indication: NON-SMALL CELL LUNG CANCER
     Dosage: 1250 MG/M2, INTRAVENOUS
     Route: 042
     Dates: start: 20051208

REACTIONS (10)
  - AORTIC EMBOLUS [None]
  - AORTIC THROMBOSIS [None]
  - CAROTID ARTERY ANEURYSM [None]
  - CAROTID ARTERY OCCLUSION [None]
  - CAROTID ARTERY STENOSIS [None]
  - CEREBRAL ISCHAEMIA [None]
  - DYSPHASIA [None]
  - HYPOAESTHESIA [None]
  - INTRACRANIAL ANEURYSM [None]
  - MONOPARESIS [None]
